FAERS Safety Report 7780303-3 (Version None)
Quarter: 2011Q3

REPORT INFORMATION
  Report Type: 
  Country: None (occurrence: None)
  Receive Date: 20110927
  Receipt Date: 20110718
  Transmission Date: 20111222
  Serious: Yes (Hospitalization)
  Sender: FDA-Public Use
  Company Number: US-ASTRAZENECA-2011SE41047

PATIENT
  Age: 59 Year
  Sex: Female
  Weight: 68 kg

DRUGS (3)
  1. SEROQUEL [Suspect]
     Route: 048
  2. TOO MANY MEDICATIONS [Concomitant]
  3. SEROQUEL [Suspect]
     Route: 048
     Dates: start: 20110101

REACTIONS (5)
  - NASAL CONGESTION [None]
  - MANIA [None]
  - DRUG DOSE OMISSION [None]
  - SLEEP DISORDER DUE TO GENERAL MEDICAL CONDITION, INSOMNIA TYPE [None]
  - DYSPNOEA [None]
